FAERS Safety Report 16832097 (Version 1)
Quarter: 2019Q3

REPORT INFORMATION
  Report Type: Spontaneous
  Country: HR (occurrence: HR)
  Receive Date: 20190920
  Receipt Date: 20190920
  Transmission Date: 20191005
  Serious: Yes (Other)
  Sender: FDA-Public Use
  Company Number: HR-TEVA-2019-HR-1111298

PATIENT
  Age: 21 Year
  Sex: Female

DRUGS (1)
  1. KLAVOCIN [Suspect]
     Active Substance: AMOXICILLIN\CLAVULANIC ACID
     Indication: PHARYNGITIS
     Dosage: BID 875 MG + 125 MG
     Route: 048

REACTIONS (3)
  - Hypersensitivity [Not Recovered/Not Resolved]
  - Urticaria [Not Recovered/Not Resolved]
  - Generalised oedema [Not Recovered/Not Resolved]
